FAERS Safety Report 24218319 (Version 2)
Quarter: 2024Q3

REPORT INFORMATION
  Report Type: Spontaneous
  Country: IT (occurrence: IT)
  Receive Date: 20240816
  Receipt Date: 20240828
  Transmission Date: 20241017
  Serious: Yes (Other)
  Sender: NOVARTIS
  Company Number: None

PATIENT
  Age: 49 Year
  Sex: Female
  Weight: 70 kg

DRUGS (1)
  1. RIBOCICLIB [Suspect]
     Active Substance: RIBOCICLIB
     Indication: Breast cancer female
     Dosage: 600 MG (RIBOCICLIB 600 MG PER 21 GG CONSECUTIVI E 1 SETTIMANA DI STOP)
     Route: 048
     Dates: start: 20240308, end: 20240530

REACTIONS (2)
  - Hypertransaminasaemia [Recovered/Resolved]
  - Breast swelling [Unknown]

NARRATIVE: CASE EVENT DATE: 20240530
